FAERS Safety Report 7466372-9 (Version None)
Quarter: 2011Q2

REPORT INFORMATION
  Report Type: 
  Country: None (occurrence: None)
  Receive Date: 20110509
  Receipt Date: 20100804
  Transmission Date: 20111010
  Serious: No
  Sender: FDA-Public Use
  Company Number: US-ALEXION-A201000932

PATIENT
  Sex: Female

DRUGS (12)
  1. SOLIRIS [Suspect]
     Indication: PAROXYSMAL NOCTURNAL HAEMOGLOBINURIA
     Dosage: 600 MG, QW X 4 DOSES
     Route: 042
     Dates: start: 20090801
  2. ESTAZOLAM [Concomitant]
     Dosage: UNK
  3. NEBIVOLOL [Concomitant]
     Dosage: UNK
  4. DILANTIN [Concomitant]
     Dosage: UNK
  5. EVISTA                             /01303201/ [Concomitant]
     Dosage: UNK
  6. GLUCOSAMINE [Concomitant]
     Dosage: UNK
  7. CORGARD [Concomitant]
     Dosage: UNK
  8. SOLIRIS [Suspect]
     Dosage: 900 MG, Q2W
     Route: 042
     Dates: start: 20090901
  9. FOLIC ACID [Concomitant]
     Dosage: UNK
  10. SYNTHROID [Concomitant]
  11. ZOLOFT [Concomitant]
     Dosage: UNK
  12. VITAMIN A [Concomitant]
     Dosage: UNK

REACTIONS (2)
  - PORPHYRIA NON-ACUTE [None]
  - CONDITION AGGRAVATED [None]
